FAERS Safety Report 15139355 (Version 7)
Quarter: 2020Q4

REPORT INFORMATION
  Report Type: Spontaneous
  Country: US (occurrence: US)
  Receive Date: 20180713
  Receipt Date: 20201105
  Transmission Date: 20210113
  Serious: No
  Sender: FDA-Public Use
  Company Number: US-PFIZER INC-2018276597

PATIENT
  Age: 29 Year
  Sex: Female

DRUGS (2)
  1. GENOTROPIN [Suspect]
     Active Substance: SOMATROPIN
     Dosage: 1.0 MG, 1X/DAY(7 DAYS A WEEK)
     Dates: start: 20110719
  2. GENOTROPIN [Suspect]
     Active Substance: SOMATROPIN
     Dosage: 1.0 MG, 1X/DAY
     Dates: start: 20060101

REACTIONS (5)
  - Myalgia [Unknown]
  - Feeling jittery [Unknown]
  - Fall [Unknown]
  - Device breakage [Unknown]
  - Product dose omission issue [Unknown]
